FAERS Safety Report 6505635-8 (Version None)
Quarter: 2009Q4

REPORT INFORMATION
  Report Type: 
  Country: None (occurrence: None)
  Receive Date: 20091218
  Receipt Date: 20091210
  Transmission Date: 20100525
  Serious: Yes (Other)
  Sender: FDA-Public Use
  Company Number: GXKR2009JP11749

PATIENT
  Age: 35 Year
  Sex: Female
  Weight: 50.2 kg

DRUGS (3)
  1. FLUOROURACIL [Suspect]
     Indication: COLON CANCER STAGE IV
     Dosage: UNK
     Route: 042
     Dates: start: 20080716
  2. OXALIPLATIN [Suspect]
     Indication: COLON CANCER STAGE IV
     Dosage: UNK
     Route: 042
     Dates: start: 20080716
  3. FOLINIC ACID (NGX) [Suspect]
     Indication: COLON CANCER STAGE IV
     Dosage: UNK
     Route: 042
     Dates: start: 20080716

REACTIONS (7)
  - ALTERED STATE OF CONSCIOUSNESS [None]
  - EYE MOVEMENT DISORDER [None]
  - HEADACHE [None]
  - HYPERTENSION [None]
  - REVERSIBLE POSTERIOR LEUKOENCEPHALOPATHY SYNDROME [None]
  - TONIC CONVULSION [None]
  - VISUAL IMPAIRMENT [None]
